FAERS Safety Report 15247202 (Version 1)
Quarter: 2018Q3

REPORT INFORMATION
  Report Type: Spontaneous
  Country: FR (occurrence: FR)
  Receive Date: 20180807
  Receipt Date: 20180807
  Transmission Date: 20181010
  Serious: Yes (Other)
  Sender: FDA-Public Use
  Company Number: FR-MERCK KGAA-2053359

PATIENT
  Age: 49 Year
  Sex: Female
  Weight: 130 kg

DRUGS (1)
  1. NOVOTHYROX [Suspect]
     Active Substance: LEVOTHYROXINE SODIUM
     Indication: AUTOIMMUNE THYROIDITIS
     Route: 048
     Dates: start: 20170514, end: 20180316

REACTIONS (8)
  - Myalgia [Recovering/Resolving]
  - Weight increased [Recovering/Resolving]
  - Depression [Recovering/Resolving]
  - Irritability [Recovering/Resolving]
  - Asthenia [Recovering/Resolving]
  - Muscle spasms [Recovering/Resolving]
  - Major depression [Recovering/Resolving]
  - Diffuse alopecia [Recovering/Resolving]

NARRATIVE: CASE EVENT DATE: 201709
